FAERS Safety Report 6170264-5 (Version None)
Quarter: 2009Q2

REPORT INFORMATION
  Report Type: 
  Country: None (occurrence: None)
  Receive Date: 20090428
  Receipt Date: 20090423
  Transmission Date: 20091009
  Serious: No
  Sender: FDA-Public Use
  Company Number: US-B.I. PHARMACEUTICALS,INC./RIDGEFIELD-2009-BP-05201BP

PATIENT
  Age: 64 Year
  Sex: Male

DRUGS (1)
  1. FLOMAX [Suspect]
     Indication: NEPHROLITHIASIS
     Dosage: .4MG
     Route: 048
     Dates: start: 20090201

REACTIONS (7)
  - BALANCE DISORDER [None]
  - COUGH [None]
  - DEHYDRATION [None]
  - FALL [None]
  - INFLUENZA [None]
  - PYREXIA [None]
  - SKIN LACERATION [None]
